FAERS Safety Report 9904010 (Version 2)
Quarter: 2014Q1

REPORT INFORMATION
  Report Type: Spontaneous
  Country: US (occurrence: US)
  Receive Date: 20140218
  Receipt Date: 20140313
  Transmission Date: 20141002
  Serious: No
  Sender: FDA-Public Use
  Company Number: US-BIOGENIDEC-2014BI012213

PATIENT
  Age: 50 Year
  Sex: Female
  Weight: 46 kg

DRUGS (13)
  1. TECFIDERA [Suspect]
     Indication: MULTIPLE SCLEROSIS
     Route: 048
     Dates: start: 20130828, end: 20130903
  2. TECFIDERA [Suspect]
     Indication: MULTIPLE SCLEROSIS
     Route: 048
     Dates: start: 201308
  3. TECFIDERA [Suspect]
     Indication: MULTIPLE SCLEROSIS
     Route: 048
     Dates: start: 20130904, end: 20131130
  4. TECFIDERA [Suspect]
     Indication: MULTIPLE SCLEROSIS
  5. NEURONTIN [Concomitant]
  6. EFFEXOR [Concomitant]
  7. SYNTHROID [Concomitant]
  8. OXYBUTYNIN [Concomitant]
  9. VITAMIN B1 [Concomitant]
  10. VITAMIN D [Concomitant]
  11. COMBIVENT [Concomitant]
  12. ADVAIR [Concomitant]
  13. PRO AIR [Concomitant]

REACTIONS (7)
  - Tremor [Unknown]
  - Visual impairment [Not Recovered/Not Resolved]
  - Lower limb fracture [Unknown]
  - Mobility decreased [Unknown]
  - Depression [Unknown]
  - Myalgia [Not Recovered/Not Resolved]
  - Flushing [Unknown]
